FAERS Safety Report 13022949 (Version 1)
Quarter: 2016Q4

REPORT INFORMATION
  Report Type: Spontaneous
  Country: GB (occurrence: GB)
  Receive Date: 20161213
  Receipt Date: 20161213
  Transmission Date: 20170207
  Serious: Yes (Other)
  Sender: FDA-Public Use
  Company Number: GB-GLAXOSMITHKLINE-GB2016180467

PATIENT
  Age: 23 Year
  Sex: Female
  Weight: 62.5 kg

DRUGS (2)
  1. MICROGYNON [Concomitant]
     Active Substance: ETHINYL ESTRADIOL\LEVONORGESTREL ACETATE
     Dosage: UNK
  2. MALARONE [Suspect]
     Active Substance: ATOVAQUONE\PROGUANIL HYDROCHLORIDE
     Indication: MALARIA PROPHYLAXIS
     Dosage: 1 DF, QD
     Route: 048
     Dates: start: 20160713, end: 20160730

REACTIONS (4)
  - Skin discolouration [Recovered/Resolved with Sequelae]
  - Blister [Unknown]
  - Wound secretion [Unknown]
  - Scab [Recovered/Resolved]

NARRATIVE: CASE EVENT DATE: 20160722
